FAERS Safety Report 9753243 (Version 2)
Quarter: 2013Q4

REPORT INFORMATION
  Report Type: Spontaneous
  Country: US (occurrence: US)
  Receive Date: 20131213
  Receipt Date: 20131213
  Transmission Date: 20140711
  Serious: No
  Sender: FDA-Public Use
  Company Number: US-GILEAD-2010-0027334

PATIENT
  Sex: Female
  Weight: 103.87 kg

DRUGS (8)
  1. LETAIRIS [Suspect]
     Indication: PULMONARY ARTERIAL HYPERTENSION
     Route: 048
     Dates: start: 20100204
  2. BENICAR [Concomitant]
  3. ARAVA [Concomitant]
  4. MOBIC [Concomitant]
  5. NIACIN [Concomitant]
  6. FOLIC ACID [Concomitant]
  7. RITUXAN [Concomitant]
  8. PREDNISONE [Concomitant]

REACTIONS (4)
  - Fatigue [Unknown]
  - Drooling [Unknown]
  - Weight increased [Unknown]
  - Headache [Unknown]
